FAERS Safety Report 5582629-0 (Version None)
Quarter: 2008Q1

REPORT INFORMATION
  Report Type: 
  Country: None (occurrence: None)
  Receive Date: 20080107
  Receipt Date: 20080102
  Transmission Date: 20080703
  Serious: Yes (Life-Threatening, Hospitalization, Other)
  Sender: FDA-Public Use
  Company Number: PHEH2008US00465

PATIENT
  Age: 89 Year
  Sex: Male

DRUGS (2)
  1. LIPITOR [Concomitant]
     Dates: start: 20070101
  2. ZOMETA [Suspect]
     Dosage: UNK, QMO

REACTIONS (7)
  - BLADDER NEOPLASM [None]
  - BLOOD CREATININE INCREASED [None]
  - METABOLIC ACIDOSIS [None]
  - MYALGIA [None]
  - OEDEMA [None]
  - RENAL FAILURE [None]
  - URETERIC OBSTRUCTION [None]
